FAERS Safety Report 15186791 (Version 1)
Quarter: 2018Q3

REPORT INFORMATION
  Report Type: Report from Study
  Country: US (occurrence: US)
  Receive Date: 20180723
  Receipt Date: 20180723
  Transmission Date: 20181010
  Serious: No
  Sender: FDA-Public Use
  Company Number: US-EXELIXIS-CABO-18012614

PATIENT
  Sex: Male
  Weight: 132.43 kg

DRUGS (1)
  1. CABOMETYX [Suspect]
     Active Substance: CABOZANTINIB S-MALATE
     Indication: RENAL CELL CARCINOMA
     Dosage: 60 MG, QD
     Route: 048

REACTIONS (5)
  - Decreased appetite [Unknown]
  - Skin exfoliation [Unknown]
  - Weight decreased [Unknown]
  - Skin discomfort [Unknown]
  - Nausea [Unknown]
